FAERS Safety Report 11722674 (Version 1)
Quarter: 2015Q4

REPORT INFORMATION
  Report Type: Spontaneous
  Country: US (occurrence: US)
  Receive Date: 20151111
  Receipt Date: 20151111
  Transmission Date: 20160304
  Serious: No
  Sender: FDA-Public Use
  Company Number: US-PFIZER INC-2015381589

PATIENT

DRUGS (3)
  1. CELECOXIB. [Suspect]
     Active Substance: CELECOXIB
     Indication: SCOLIOSIS
  2. CELECOXIB. [Suspect]
     Active Substance: CELECOXIB
     Indication: SYSTEMIC LUPUS ERYTHEMATOSUS
  3. CELECOXIB. [Suspect]
     Active Substance: CELECOXIB
     Indication: RHEUMATOID ARTHRITIS
     Dosage: UNK

REACTIONS (2)
  - Drug ineffective [Unknown]
  - Abdominal pain upper [Unknown]
